FAERS Safety Report 17316439 (Version 3)
Quarter: 2020Q4

REPORT INFORMATION
  Report Type: Report from Study
  Country: IT (occurrence: IT)
  Receive Date: 20200124
  Receipt Date: 20201119
  Transmission Date: 20210113
  Serious: Yes (Death, Hospitalization)
  Sender: FDA-Public Use
  Company Number: NVSC2019IT073264

PATIENT
  Age: 58 Year

DRUGS (9)
  1. SOLDESAM [Concomitant]
     Active Substance: DEXAMETHASONE
     Indication: PALLIATIVE CARE
     Dosage: 4 DF
     Route: 042
     Dates: start: 20190204
  2. TRAMETINIB [Suspect]
     Active Substance: TRAMETINIB
     Indication: METASTATIC MALIGNANT MELANOMA
     Dosage: 2 DF
     Route: 048
     Dates: start: 20180504, end: 20180710
  3. TRAMETINIB [Suspect]
     Active Substance: TRAMETINIB
     Dosage: 2 DF
     Route: 048
     Dates: start: 20180716, end: 20190204
  4. PREDNISONE. [Concomitant]
     Active Substance: PREDNISONE
     Indication: PROPHYLAXIS
     Dosage: 12.5 DF
     Route: 048
     Dates: start: 20180718, end: 20180720
  5. TAFINLAR [Suspect]
     Active Substance: DABRAFENIB MESYLATE
     Indication: MALIGNANT MELANOMA
     Dosage: 300 DF
     Route: 048
     Dates: start: 20180504, end: 20180710
  6. TAFINLAR [Suspect]
     Active Substance: DABRAFENIB MESYLATE
     Dosage: 300 DF
     Route: 048
     Dates: start: 20180716, end: 20190204
  7. PARACETAMOL [Concomitant]
     Active Substance: ACETAMINOPHEN
     Indication: PALLIATIVE CARE
     Dosage: 500 DF
     Route: 048
     Dates: start: 20190121
  8. MANNITOLO [Concomitant]
     Indication: PALLIATIVE CARE
     Dosage: 250 DF
     Route: 042
     Dates: start: 20190204
  9. CODEINE [Concomitant]
     Active Substance: CODEINE
     Indication: PALLIATIVE CARE
     Dosage: 30 DF
     Route: 048
     Dates: start: 20190121

REACTIONS (10)
  - Asthenia [Recovered/Resolved]
  - Malignant neoplasm progression [Fatal]
  - Angioedema [Recovered/Resolved]
  - Hypertension [Not Recovered/Not Resolved]
  - Oedema peripheral [Recovering/Resolving]
  - Musculoskeletal chest pain [Recovered/Resolved]
  - Malignant melanoma [Fatal]
  - Muscle spasms [Recovered/Resolved]
  - Coordination abnormal [Recovered/Resolved]
  - Hypertension [Recovered/Resolved]

NARRATIVE: CASE EVENT DATE: 20180711
